FAERS Safety Report 10076838 (Version 1)
Quarter: 2014Q2

REPORT INFORMATION
  Report Type: Spontaneous
  Country: US (occurrence: US)
  Receive Date: 20140414
  Receipt Date: 20140414
  Transmission Date: 20141212
  Serious: Yes (Hospitalization)
  Sender: FDA-Public Use
  Company Number: US-BAYER-2014-052863

PATIENT
  Age: 50 Year
  Sex: Female

DRUGS (2)
  1. MAGNEVIST [Suspect]
     Indication: NUCLEAR MAGNETIC RESONANCE IMAGING BRAIN
     Dosage: 13 ML, ONCE
     Route: 042
     Dates: start: 20140407, end: 20140407
  2. MAGNEVIST [Suspect]
     Indication: AMNESIA

REACTIONS (11)
  - Feeling hot [None]
  - Rash macular [None]
  - Erythema [None]
  - Dizziness [None]
  - Convulsion [None]
  - Binocular eye movement disorder [None]
  - Mydriasis [None]
  - Muscle spasms [None]
  - Apnoea [None]
  - Cyanosis [None]
  - Urinary incontinence [None]
